FAERS Safety Report 8608992-1 (Version None)
Quarter: 2012Q3

REPORT INFORMATION
  Report Type: 
  Country: None (occurrence: None)
  Receive Date: 20120821
  Receipt Date: 20120814
  Transmission Date: 20120928
  Serious: Yes (Hospitalization)
  Sender: FDA-Public Use
  Company Number: CA-GLAXOSMITHKLINE-A0989731A

PATIENT
  Sex: Female

DRUGS (3)
  1. TYKERB [Suspect]
     Indication: BREAST CANCER METASTATIC
     Dosage: 1250MG PER DAY
     Route: 048
     Dates: start: 20100201, end: 20120612
  2. CARBAMAZEPINE [Concomitant]
  3. DEXAMETHASONE [Concomitant]

REACTIONS (4)
  - METASTASES TO CENTRAL NERVOUS SYSTEM [None]
  - METASTASES TO PELVIS [None]
  - CONVULSION [None]
  - METASTASES TO LIVER [None]
